FAERS Safety Report 8796437 (Version 2)
Quarter: 2013Q3

REPORT INFORMATION
  Report Type: Spontaneous
  Country: FR (occurrence: FR)
  Receive Date: 20120919
  Receipt Date: 20130715
  Transmission Date: 20140515
  Serious: Yes (Hospitalization)
  Sender: FDA-Public Use
  Company Number: FR-ASTRAZENECA-2012SE70810

PATIENT
  Age: 963 Month
  Sex: Male

DRUGS (4)
  1. INEXIUM [Suspect]
     Route: 048
  2. PREVISCAN [Suspect]
     Route: 048
  3. CORDARONE [Suspect]
     Route: 048
  4. ALLOPURINOL [Suspect]
     Route: 048

REACTIONS (2)
  - Eosinophilia [Not Recovered/Not Resolved]
  - Pruritus [Unknown]
